FAERS Safety Report 9694301 (Version 2)
Quarter: 2013Q4

REPORT INFORMATION
  Report Type: Spontaneous
  Country: US (occurrence: US)
  Receive Date: 20131118
  Receipt Date: 20131118
  Transmission Date: 20140711
  Serious: No
  Sender: FDA-Public Use
  Company Number: US-GILEAD-2007-0012742

PATIENT
  Age: 32 Year
  Sex: Female

DRUGS (5)
  1. LETAIRIS [Suspect]
     Indication: PULMONARY HYPERTENSION
     Route: 048
     Dates: start: 20070717
  2. VENTAVIS [Concomitant]
     Dosage: 6-9 X/DAY
     Dates: start: 20070622
  3. LASIX [Concomitant]
     Indication: PULMONARY ARTERIAL HYPERTENSION
     Route: 048
  4. KLOR-CON [Concomitant]
     Indication: PULMONARY ARTERIAL HYPERTENSION
     Route: 048
  5. KLOR-CON [Concomitant]
     Indication: DIURETIC THERAPY

REACTIONS (6)
  - Oropharyngeal pain [Recovered/Resolved]
  - Flushing [Recovered/Resolved]
  - Weight increased [Recovering/Resolving]
  - Headache [Recovered/Resolved]
  - Oedema peripheral [Recovering/Resolving]
  - Nasal congestion [Unknown]
